FAERS Safety Report 9154196 (Version 1)
Quarter: 2013Q1

REPORT INFORMATION
  Report Type: Spontaneous
  Country: US (occurrence: US)
  Receive Date: 20130311
  Receipt Date: 20130311
  Transmission Date: 20140127
  Serious: Yes (Other)
  Sender: FDA-Public Use
  Company Number: US-PFIZER INC-2013077743

PATIENT
  Age: 19 Year
  Sex: Male
  Weight: 147 kg

DRUGS (1)
  1. VIAGRA [Suspect]
     Dosage: 400 MG, 1X/DAY
     Route: 048

REACTIONS (3)
  - Incorrect dose administered [Unknown]
  - Intentional drug misuse [Unknown]
  - Erection increased [Unknown]
